FAERS Safety Report 10220975 (Version 1)
Quarter: 2014Q2

REPORT INFORMATION
  Report Type: Spontaneous
  Country: US (occurrence: None)
  Receive Date: 20140605
  Receipt Date: 20140605
  Transmission Date: 20141212
  Serious: Yes (Hospitalization, Disabling, Other)
  Sender: FDA-Public Use
  Company Number: None

PATIENT
  Age: 86 Year
  Sex: Male
  Weight: 87.09 kg

DRUGS (1)
  1. NEURONTIN [Suspect]
     Indication: NEURALGIA
     Dosage: 1 PILLS- 3 PILLS THREE TIMES DAILY TAKEN BY MOUTH
     Route: 048

REACTIONS (8)
  - Fatigue [None]
  - Somnolence [None]
  - Amnesia [None]
  - Dyskinesia [None]
  - Tremor [None]
  - Paraesthesia [None]
  - Fall [None]
  - General physical health deterioration [None]
